FAERS Safety Report 8071082-3 (Version None)
Quarter: 2012Q1

REPORT INFORMATION
  Report Type: 
  Country: None (occurrence: None)
  Receive Date: 20120125
  Receipt Date: 20120120
  Transmission Date: 20120608
  Serious: Yes (Other)
  Sender: FDA-Public Use
  Company Number: US-PFIZER INC-2012017211

PATIENT
  Sex: Female
  Weight: 65.76 kg

DRUGS (9)
  1. LISINOPRIL [Concomitant]
     Dosage: 10 MG, 1X/DAY
  2. MULTI-VITAMINS [Concomitant]
     Dosage: UNK, 1X/DAY
  3. GEMFIBROZIL [Concomitant]
     Dosage: 600 MG, 2X/DAY
  4. SPIRIVA [Concomitant]
     Dosage: UNK, 1X/DAY
  5. LASIX [Concomitant]
     Dosage: 20 MG, 1X/DAY
  6. ZETIA [Concomitant]
     Dosage: 10 MG, 1X/DAY
  7. LYRICA [Suspect]
     Indication: FIBROMYALGIA
     Dosage: 50 MG, 3X/DAY
     Route: 048
     Dates: start: 20080101
  8. EFFEXOR [Concomitant]
     Dosage: 75 MG, 1X/DAY
  9. AMLODIPINE [Concomitant]
     Dosage: 5 MG, 1X/DAY

REACTIONS (1)
  - NEPHROPATHY [None]
